FAERS Safety Report 11003068 (Version 1)
Quarter: 2015Q2

REPORT INFORMATION
  Report Type: Spontaneous
  Country: GB (occurrence: GB)
  Receive Date: 20150409
  Receipt Date: 20150409
  Transmission Date: 20150821
  Serious: Yes (Other)
  Sender: FDA-Public Use
  Company Number: GB-AMGEN-GBRSP2015033499

PATIENT
  Age: 54 Year
  Sex: Female

DRUGS (1)
  1. ENBREL [Suspect]
     Active Substance: ETANERCEPT
     Indication: PRODUCT USED FOR UNKNOWN INDICATION
     Dosage: 50 MG, WEEKLY
     Route: 065
     Dates: start: 20150310, end: 2015

REACTIONS (5)
  - Cerebrovascular accident [Unknown]
  - Feeling abnormal [Unknown]
  - VIIth nerve paralysis [Unknown]
  - Transient ischaemic attack [Unknown]
  - Mental impairment [Unknown]

NARRATIVE: CASE EVENT DATE: 2015
